FAERS Safety Report 9559421 (Version 1)
Quarter: 2013Q3

REPORT INFORMATION
  Report Type: Spontaneous
  Country: US (occurrence: None)
  Receive Date: 20130909
  Receipt Date: 20130909
  Transmission Date: 20140515
  Serious: Yes (Hospitalization)
  Sender: FDA-Public Use
  Company Number: 373878

PATIENT
  Age: 59 Year
  Sex: Female
  Weight: 80.2 kg

DRUGS (5)
  1. VICTOZA (LIRAGLUTIDE) SOLUTION FOR INJECTION, 6MG/ML [Suspect]
     Indication: TYPE 2 DIABETES MELLITUS
     Route: 058
     Dates: start: 20130125, end: 20130208
  2. METFORMIN (METFORMIN) [Concomitant]
  3. SIMVASTATIN (SIMVASTATIN) [Concomitant]
  4. LISINOPRIL HYDROCHLOROTHIAZID (HYDROCHLOROTHIAZIDE, LISINOPRIL) [Concomitant]
  5. PRIMAXIN (CILASTATIN SODIUM, IMIPENEM) [Concomitant]

REACTIONS (3)
  - Pancreatitis [None]
  - Renal failure acute [None]
  - Dehydration [None]
